FAERS Safety Report 7822783-0 (Version None)
Quarter: 2011Q4

REPORT INFORMATION
  Report Type: 
  Country: None (occurrence: None)
  Receive Date: 20111018
  Receipt Date: 20100903
  Transmission Date: 20120403
  Serious: No
  Sender: FDA-Public Use
  Company Number: US-ASTRAZENECA-2010SE35074

PATIENT
  Age: 32406 Day
  Sex: Female
  Weight: 44.5 kg

DRUGS (11)
  1. SYMBICORT [Suspect]
     Dosage: 160/4.5 1 PUFF BID
     Route: 055
     Dates: end: 20100727
  2. LIPITOR [Concomitant]
  3. SYMBICORT [Suspect]
     Dosage: 160/4.5 2 PUFFS BID
     Route: 055
     Dates: start: 20100724
  4. RESTORIL [Concomitant]
  5. CARAFATE [Concomitant]
     Dosage: PRN
  6. SYMBICORT [Suspect]
     Dosage: 160/4.5 1 PUFF BID
     Route: 055
     Dates: start: 20100903
  7. SYNTHROID [Concomitant]
  8. LEXAPRO [Concomitant]
  9. BENTYL [Concomitant]
  10. SPIRIVA [Concomitant]
  11. HYZAAR [Concomitant]

REACTIONS (8)
  - COUGH [None]
  - RETCHING [None]
  - DRUG INEFFECTIVE [None]
  - DYSURIA [None]
  - DYSPNOEA [None]
  - RHINORRHOEA [None]
  - INSOMNIA [None]
  - INCORRECT DOSE ADMINISTERED [None]
